FAERS Safety Report 4622680-8 (Version None)
Quarter: 2005Q1

REPORT INFORMATION
  Report Type: 
  Country: None (occurrence: None)
  Receive Date: 20050328
  Receipt Date: 20050328
  Transmission Date: 20050727
  Serious: No
  Sender: FDA-Public Use
  Company Number: None

PATIENT
  Sex: Male
  Weight: 75.7507 kg

DRUGS (3)
  1. EPZICOM [Suspect]
     Indication: HIV INFECTION
     Dosage: 1 TAB BID PO
     Route: 048
     Dates: start: 20050301, end: 20050310
  2. ATAZANAVIR [Concomitant]
  3. RITONAVIR [Concomitant]

REACTIONS (7)
  - ANOREXIA [None]
  - CHILLS [None]
  - FATIGUE [None]
  - HEADACHE [None]
  - NAUSEA [None]
  - PYREXIA [None]
  - VOMITING [None]
